FAERS Safety Report 8685031 (Version 2)
Quarter: 2013Q4

REPORT INFORMATION
  Report Type: Spontaneous
  Country: US (occurrence: US)
  Receive Date: 20120726
  Receipt Date: 20131101
  Transmission Date: 20140711
  Serious: No
  Sender: FDA-Public Use
  Company Number: US-009507513-1207USA006687

PATIENT
  Age: 6 Year
  Sex: Female
  Weight: 22.68 kg

DRUGS (2)
  1. CLARITIN [Suspect]
     Indication: SEASONAL ALLERGY
     Dosage: 5 MG, QAM
  2. CLARITIN [Suspect]
     Dosage: UNK UNK, ONCE
     Route: 048
     Dates: start: 20120628

REACTIONS (2)
  - Overdose [Unknown]
  - Accidental exposure to product by child [Unknown]
